FAERS Safety Report 15715459 (Version 3)
Quarter: 2019Q2

REPORT INFORMATION
  Report Type: Spontaneous
  Country: BE (occurrence: BE)
  Receive Date: 20181212
  Receipt Date: 20190516
  Transmission Date: 20190711
  Serious: Yes (Hospitalization)
  Sender: FDA-Public Use
  Company Number: BE-BAUSCH-BL-2018-034567

PATIENT
  Age: 72 Year
  Sex: Female

DRUGS (11)
  1. ARIPIPRAZOLE. [Suspect]
     Active Substance: ARIPIPRAZOLE
     Indication: MENTAL DISORDER
     Dosage: IN THE MORNING
     Route: 065
  2. PROPIVERINE [Suspect]
     Active Substance: PROPIVERINE
     Indication: MENTAL DISORDER
     Dosage: (IN THE EVENING)
     Route: 065
  3. MIRTAZAPINE. [Suspect]
     Active Substance: MIRTAZAPINE
     Dosage: IN THE EVENING
     Route: 065
  4. SUPRADYN VITAL 50 PLUS [Suspect]
     Active Substance: ASCORBIC ACID\MINERALS\VITAMINS
     Indication: MENTAL DISORDER
     Dosage: IN THE MORNING
     Route: 065
  5. PARACETAMOL CODEINE [Suspect]
     Active Substance: ACETAMINOPHEN\CODEINE PHOSPHATE
     Indication: PAIN
     Dosage: PRN (AS NEEDED)
     Route: 065
  6. ATORVASTATIN [Suspect]
     Active Substance: ATORVASTATIN
     Indication: MENTAL DISORDER
     Dosage: IN THE EVENING
     Route: 065
  7. LORAZEPAM. [Suspect]
     Active Substance: LORAZEPAM
     Indication: MENTAL DISORDER
     Dosage: PM (IN THE EVENING)
     Route: 065
  8. VENLAFAXINE [Suspect]
     Active Substance: VENLAFAXINE HYDROCHLORIDE
     Indication: MENTAL DISORDER
     Dosage: IN THE MORNING
     Route: 065
  9. ATORVASTATIN [Suspect]
     Active Substance: ATORVASTATIN
     Dosage: IN THE EVENING
     Route: 065
  10. ZOLPIDEM [Suspect]
     Active Substance: ZOLPIDEM\ZOLPIDEM TARTRATE
     Indication: PRODUCT USED FOR UNKNOWN INDICATION
     Dosage: PM (IN THE EVENING)
     Route: 065
  11. MIRTAZAPINE. [Suspect]
     Active Substance: MIRTAZAPINE
     Indication: MENTAL DISORDER
     Dosage: PM (IN THE EVENING)
     Route: 065

REACTIONS (1)
  - Fall [Unknown]
